FAERS Safety Report 25116114 (Version 1)
Quarter: 2025Q1

REPORT INFORMATION
  Report Type: Spontaneous
  Country: RU (occurrence: RU)
  Receive Date: 20250325
  Receipt Date: 20250325
  Transmission Date: 20250408
  Serious: Yes (Hospitalization, Other)
  Sender: ELI LILLY AND COMPANY
  Company Number: RU-ELI_LILLY_AND_COMPANY-RU202503013261

PATIENT
  Age: 61 Year
  Sex: Female

DRUGS (12)
  1. OLUMIANT [Suspect]
     Active Substance: BARICITINIB
     Indication: Antiviral treatment
     Route: 065
  2. NADROPARIN CALCIUM [Suspect]
     Active Substance: NADROPARIN CALCIUM
     Indication: Anticoagulant therapy
     Route: 065
     Dates: start: 2020
  3. UMIFENOVIR [Suspect]
     Active Substance: UMIFENOVIR
     Indication: Antiviral treatment
     Route: 065
     Dates: start: 2020
  4. AZITHROMYCIN [Suspect]
     Active Substance: AZITHROMYCIN
     Indication: Antiviral treatment
     Route: 065
     Dates: start: 2020
  5. RITONAVIR [Suspect]
     Active Substance: RITONAVIR
     Indication: Antiviral treatment
     Route: 065
     Dates: start: 2020
  6. TOCILIZUMAB [Suspect]
     Active Substance: TOCILIZUMAB
     Indication: Antiviral treatment
     Route: 065
     Dates: start: 2020
  7. PLAQUENIL [Suspect]
     Active Substance: HYDROXYCHLOROQUINE SULFATE
     Indication: Antiviral treatment
     Route: 065
     Dates: start: 2020
  8. ASPIRIN [Suspect]
     Active Substance: ASPIRIN
     Indication: Antiplatelet therapy
     Route: 065
     Dates: start: 2020
  9. CEFTRIAXONE [Suspect]
     Active Substance: CEFTRIAXONE
     Indication: Antibiotic therapy
     Route: 065
     Dates: start: 2020, end: 2020
  10. VANCOMYCIN [Suspect]
     Active Substance: VANCOMYCIN
     Indication: Product used for unknown indication
     Route: 065
  11. MEROPENEM [Suspect]
     Active Substance: MEROPENEM
     Indication: Antibiotic therapy
     Route: 065
  12. AMOXICILLIN\CLAVULANIC ACID [Suspect]
     Active Substance: AMOXICILLIN\CLAVULANIC ACID
     Indication: Antibiotic therapy
     Route: 065
     Dates: start: 2020

REACTIONS (21)
  - Face oedema [Recovered/Resolved]
  - Oedema peripheral [Recovered/Resolved]
  - Oxygen saturation decreased [Recovered/Resolved]
  - Lung opacity [Unknown]
  - Skin maceration [Recovered/Resolved]
  - Body temperature increased [Recovered/Resolved]
  - Superficial vein thrombosis [Unknown]
  - Superficial vein thrombosis [Unknown]
  - Hyperaemia [Unknown]
  - Toxic skin eruption [Unknown]
  - Pneumonia [Recovered/Resolved]
  - Rash [Recovered/Resolved]
  - Serum ferritin increased [Unknown]
  - Fibrin D dimer increased [Unknown]
  - Blood urea increased [Unknown]
  - Blood creatinine increased [Unknown]
  - Synovial cyst [Unknown]
  - Erythema [Unknown]
  - Dyspnoea [Unknown]
  - Alanine aminotransferase increased [Unknown]
  - Aspartate aminotransferase increased [Unknown]

NARRATIVE: CASE EVENT DATE: 20200101
